FAERS Safety Report 5163539-X (Version None)
Quarter: 2006Q4

REPORT INFORMATION
  Report Type: 
  Country: None (occurrence: None)
  Receive Date: 20061204
  Receipt Date: 20020121
  Transmission Date: 20070319
  Serious: Yes (Hospitalization, Other)
  Sender: FDA-Public Use
  Company Number: US-BRISTOL-MYERS SQUIBB COMPANY-11678133

PATIENT
  Age: 4 Day
  Sex: Female

DRUGS (9)
  1. ZERIT [Suspect]
     Dosage: ONGOING GESTATIONAL WEEKS 2 THROUGH 10
     Route: 048
  2. VIDEX [Suspect]
     Dosage: ONGOING AT GESTATIONAL WEEKS 2 THROUGH 10
     Route: 048
  3. INVIRASE [Suspect]
     Dosage: INITIATED AT GESTATIONAL WEEK 29
     Route: 064
  4. RETROVIR [Suspect]
     Dosage: INITIATED AT GESTATIONAL WEEK 10
     Route: 064
  5. RETROVIR [Suspect]
     Dosage: RECEIVED 6 WEEK COURSE AFTER BIRTH
  6. RETROVIR [Suspect]
     Dosage: INFUSION AT DELIVERY
  7. CRIXIVAN [Suspect]
     Dosage: ONGOING GESTATIONAL WEEK 2 THROUGH 10
  8. EPIVIR [Suspect]
     Dosage: INITIATED AT GESTATIONAL WEEK 29
  9. EPIVIR [Suspect]
     Dosage: 6 WEEK COURSE AFTER BIRTH

REACTIONS (6)
  - ANAEMIA MACROCYTIC [None]
  - DRUG EXPOSURE DURING PREGNANCY [None]
  - ELECTROENCEPHALOGRAM ABNORMAL [None]
  - FOETAL GROWTH RETARDATION [None]
  - NEUTROPENIA [None]
  - RHINITIS [None]
